FAERS Safety Report 8986986 (Version 5)
Quarter: 2013Q1

REPORT INFORMATION
  Report Type: Spontaneous
  Country: BR (occurrence: BR)
  Receive Date: 20121227
  Receipt Date: 20130326
  Transmission Date: 20140127
  Serious: Yes (Other)
  Sender: FDA-Public Use
  Company Number: PHHY2012BR119433

PATIENT
  Sex: Male

DRUGS (6)
  1. EXJADE [Suspect]
     Indication: IRON OVERLOAD
     Dosage: 4 DF (250 MG), UNK
     Route: 048
     Dates: end: 201302
  2. FOLIC ACID [Concomitant]
     Indication: SICKLE CELL ANAEMIA
     Dosage: 10 MG, IN THE MORNING AND IN THE AFTERNOON
     Route: 048
  3. VITAMIN B [Concomitant]
     Indication: SICKLE CELL ANAEMIA
     Dosage: 1 DF, IN THE MORNING AND IN THE AFTERNOON
     Route: 048
  4. PENVENO [Concomitant]
     Indication: INFECTION
     Dosage: 1 DF, IN THE MORNING AND IN THE AFTERNOON
     Route: 048
  5. ASA [Concomitant]
     Indication: ANTICOAGULANT THERAPY
     Dosage: 1 DF (100 MG), DAILY
     Route: 048
  6. BENZETACIL [Concomitant]
     Indication: INFECTION
     Dosage: 1 DF, EVERY 21 HOURS
     Route: 030

REACTIONS (12)
  - Gastrointestinal disorder [Recovered/Resolved]
  - Haematemesis [Recovered/Resolved]
  - Serum ferritin increased [Unknown]
  - Vomiting [Recovered/Resolved]
  - Nausea [Recovered/Resolved]
  - Retching [Unknown]
  - Malaise [Unknown]
  - Wrong technique in drug usage process [Unknown]
  - Influenza [Recovered/Resolved]
  - Cough [Recovered/Resolved]
  - Drug ineffective [Recovering/Resolving]
  - Pyrexia [Recovered/Resolved]
